FAERS Safety Report 10022474 (Version 2)
Quarter: 2014Q1

REPORT INFORMATION
  Report Type: Spontaneous
  Country: US (occurrence: US)
  Receive Date: 20140319
  Receipt Date: 20140319
  Transmission Date: 20141002
  Serious: Yes (Other)
  Sender: FDA-Public Use
  Company Number: US-SA-2014SA029825

PATIENT
  Sex: 0

DRUGS (1)
  1. PLAVIX [Suspect]
     Route: 048
     Dates: start: 20060805, end: 20070303

REACTIONS (2)
  - Multiple injuries [Not Recovered/Not Resolved]
  - Gastrointestinal haemorrhage [Unknown]
